FAERS Safety Report 13673297 (Version 1)
Quarter: 2017Q2

REPORT INFORMATION
  Report Type: Spontaneous
  Country: GB (occurrence: GB)
  Receive Date: 20170621
  Receipt Date: 20170621
  Transmission Date: 20170830
  Serious: Yes (Other)
  Sender: FDA-Public Use
  Company Number: GB-CONCORDIA PHARMACEUTICALS INC.-GSH201706-003480

PATIENT
  Age: 73 Year
  Sex: Female

DRUGS (1)
  1. PREDNISOLONE. [Suspect]
     Active Substance: PREDNISOLONE
     Indication: PEMPHIGOID
     Dosage: DAILY
     Dates: start: 201702

REACTIONS (7)
  - Dependence [Unknown]
  - Personality change [Unknown]
  - Amnesia [Unknown]
  - Euphoric mood [Unknown]
  - Hostility [Unknown]
  - Mental impairment [Unknown]
  - Thinking abnormal [Unknown]
